FAERS Safety Report 18630323 (Version 7)
Quarter: 2021Q3

REPORT INFORMATION
  Report Type: Report from Study
  Country: RU (occurrence: RU)
  Receive Date: 20201217
  Receipt Date: 20210917
  Transmission Date: 20211014
  Serious: Yes (Death, Hospitalization)
  Sender: FDA-Public Use
  Company Number: RU-ROCHE-2734046

PATIENT
  Age: 65 Year
  Sex: Male
  Weight: 108 kg

DRUGS (9)
  1. ATEZOLIZUMAB. [Suspect]
     Active Substance: ATEZOLIZUMAB
     Indication: HEPATOCELLULAR CARCINOMA
     Dosage: ON 03/DEC/2020, RECEIVED MOST RECENT DOSE OF ATEZOLIZUMAB (1200 MG) PRIOR TO ADVERSE EVENT (AE) AND
     Route: 042
     Dates: start: 20180906
  2. BISOPROLOL [Concomitant]
     Active Substance: BISOPROLOL
     Indication: HYPERTENSION
     Dates: start: 2009
  3. ASPIRIN. [Concomitant]
     Active Substance: ASPIRIN
     Indication: ANGINA PECTORIS
     Dates: start: 2013
  4. BEVACIZUMAB. [Suspect]
     Active Substance: BEVACIZUMAB
     Indication: HEPATOCELLULAR CARCINOMA
     Dosage: 15 MG/KG ON DAY 1 OF EACH 21 DAY CYCLE?ON 03/DEC/2020, RECEIVED MOST RECENT DOSE OF BEVACIZUMAB (169
     Route: 042
     Dates: start: 20180906
  5. DIABETON (RUSSIA) [Concomitant]
     Indication: DIABETES MELLITUS
     Dates: start: 2007
  6. ATORVASTATIN [Concomitant]
     Active Substance: ATORVASTATIN
     Indication: ANGINA PECTORIS
     Dates: start: 2013
  7. METFORMIN [Concomitant]
     Active Substance: METFORMIN HYDROCHLORIDE
     Indication: DIABETES MELLITUS
     Dates: start: 2017, end: 20201211
  8. AMLODIPINUM [Concomitant]
     Indication: HYPERTENSION
     Dates: start: 2009
  9. CAPTOPRIL. [Concomitant]
     Active Substance: CAPTOPRIL
     Indication: BLOOD PRESSURE INCREASED
     Dates: start: 20190716

REACTIONS (3)
  - COVID-19 [Fatal]
  - Hypertension [Not Recovered/Not Resolved]
  - Hyperglycaemia [Not Recovered/Not Resolved]

NARRATIVE: CASE EVENT DATE: 20201211
